FAERS Safety Report 21677990 (Version 1)
Quarter: 2022Q4

REPORT INFORMATION
  Report Type: Report from Study
  Country: US (occurrence: US)
  Receive Date: 20221203
  Receipt Date: 20221203
  Transmission Date: 20230113
  Serious: Yes (Hospitalization, Other)
  Sender: FDA-Public Use
  Company Number: US-ABBVIE-4221982

PATIENT
  Sex: Male

DRUGS (2)
  1. HUMIRA [Suspect]
     Active Substance: ADALIMUMAB
     Indication: Uveitis
     Dosage: STRENGTH: 40 MILLIGRAM
     Route: 058
     Dates: start: 2019
  2. METHOTREXATE [Concomitant]
     Active Substance: METHOTREXATE
     Indication: Product used for unknown indication

REACTIONS (12)
  - Loss of consciousness [Recovered/Resolved]
  - Iritis [Unknown]
  - Pulmonary embolism [Recovering/Resolving]
  - Influenza [Recovered/Resolved]
  - Concussion [Recovered/Resolved]
  - Rheumatoid arthritis [Unknown]
  - Thrombosis [Unknown]
  - Ear infection [Recovered/Resolved]
  - Visual impairment [Not Recovered/Not Resolved]
  - Asthma [Recovered/Resolved]
  - Pneumonitis [Unknown]
  - Visual impairment [Recovered/Resolved]

NARRATIVE: CASE EVENT DATE: 20210101
